FAERS Safety Report 25550299 (Version 1)
Quarter: 2025Q3

REPORT INFORMATION
  Report Type: Spontaneous
  Country: US (occurrence: US)
  Receive Date: 20250714
  Receipt Date: 20250714
  Transmission Date: 20251021
  Serious: Yes (Hospitalization)
  Sender: TORRENT PHARMA INC.
  Company Number: US-TORRENT-00014406

PATIENT
  Age: 35 Year
  Sex: Male
  Weight: 99 kg

DRUGS (3)
  1. LURASIDONE [Suspect]
     Active Substance: LURASIDONE
     Indication: Bipolar I disorder
     Dosage: 1DF QD
     Route: 048
     Dates: end: 20250227
  2. ABILIFY [Suspect]
     Active Substance: ARIPIPRAZOLE
     Indication: Bipolar I disorder
     Dosage: 1 DF QD
     Route: 048
     Dates: start: 20250227, end: 20250609
  3. DEPAKOTE [Concomitant]
     Active Substance: DIVALPROEX SODIUM
     Indication: Product used for unknown indication
     Route: 065

REACTIONS (3)
  - Impulse-control disorder [Unknown]
  - Mania [Unknown]
  - Imprisonment [Recovered/Resolved]

NARRATIVE: CASE EVENT DATE: 20250227
